FAERS Safety Report 4666815-X (Version None)
Quarter: 2005Q2

REPORT INFORMATION
  Report Type: 
  Country: None (occurrence: None)
  Receive Date: 20050519
  Receipt Date: 20030306
  Transmission Date: 20051028
  Serious: Yes (Hospitalization, Other)
  Sender: FDA-Public Use
  Company Number: US-MERCK-0303USA00626

PATIENT
  Age: 78 Year
  Sex: Male
  Weight: 91 kg

DRUGS (14)
  1. VIOXX [Suspect]
     Indication: ARTHRITIS
     Route: 048
     Dates: start: 20000302, end: 20001031
  2. ULTRAM [Concomitant]
     Route: 065
  3. CENTRUM [Concomitant]
     Route: 065
  4. CARISOPRODOL [Concomitant]
     Route: 065
  5. VICODIN [Concomitant]
     Route: 065
  6. MICRONASE [Concomitant]
     Route: 065
  7. VASOTEC [Concomitant]
     Route: 065
  8. ZYLOPRIM [Concomitant]
     Route: 065
  9. LIPITOR [Concomitant]
     Route: 065
  10. GLUCOPHAGE [Concomitant]
     Route: 065
  11. ECOTRIN [Concomitant]
     Route: 065
  12. XANAX [Concomitant]
     Route: 065
     Dates: start: 20000101, end: 20030101
  13. ASPIRIN [Concomitant]
     Route: 065
  14. PREVACID [Concomitant]
     Route: 065

REACTIONS (29)
  - ABDOMINAL PAIN [None]
  - ABDOMINAL STRANGULATED HERNIA [None]
  - ACUTE PRERENAL FAILURE [None]
  - ANAEMIA [None]
  - BENIGN PROSTATIC HYPERPLASIA [None]
  - CARDIAC FAILURE CONGESTIVE [None]
  - CAROTID BRUIT [None]
  - CARPAL TUNNEL SYNDROME [None]
  - COLONIC POLYP [None]
  - DEAFNESS NEUROSENSORY [None]
  - EMOTIONAL DISTRESS [None]
  - GASTRIC ULCER HAEMORRHAGE [None]
  - GASTRITIS [None]
  - GASTRITIS EROSIVE [None]
  - GASTROENTERITIS [None]
  - GASTROINTESTINAL DISORDER [None]
  - HAEMORRHOIDS [None]
  - HIATUS HERNIA [None]
  - INTERVERTEBRAL DISC DEGENERATION [None]
  - MELAENA [None]
  - MITRAL VALVE INCOMPETENCE [None]
  - RENAL FAILURE [None]
  - ROTATOR CUFF SYNDROME [None]
  - SMALL INTESTINAL OBSTRUCTION [None]
  - SPINAL COLUMN STENOSIS [None]
  - SPINAL OSTEOARTHRITIS [None]
  - SUDDEN HEARING LOSS [None]
  - THROMBOCYTOPENIA [None]
  - TRICUSPID VALVE INCOMPETENCE [None]
